FAERS Safety Report 5759407-2 (Version None)
Quarter: 2008Q2

REPORT INFORMATION
  Report Type: 
  Country: None (occurrence: None)
  Receive Date: 20080604
  Receipt Date: 20080604
  Transmission Date: 20081010
  Serious: No
  Sender: FDA-Public Use
  Company Number: None

PATIENT
  Sex: Male
  Weight: 72.5755 kg

DRUGS (1)
  1. DIGITEK 0.125 MG ACTAVIS TOTOWA LLC. [Suspect]
     Indication: CARDIAC DISORDER
     Dosage: 1 TABLET 0.125MG ONE TIME DAILY MOUTH
     Route: 048

REACTIONS (4)
  - CARDIAC DISORDER [None]
  - DIZZINESS [None]
  - NAUSEA [None]
  - PHARMACEUTICAL PRODUCT COMPLAINT [None]
